FAERS Safety Report 16890330 (Version 2)
Quarter: 2019Q4

REPORT INFORMATION
  Report Type: Report from Study
  Country: RU (occurrence: RU)
  Receive Date: 20191007
  Receipt Date: 20191010
  Transmission Date: 20200122
  Serious: Yes (Death)
  Sender: FDA-Public Use
  Company Number: RU-TEVA-2019-RU-1118325

PATIENT

DRUGS (10)
  1. VINCRISTINE [Suspect]
     Active Substance: VINCRISTINE
     Indication: IMMUNOSUPPRESSANT DRUG THERAPY
     Route: 064
  2. CHLOROPYRAMINE [Suspect]
     Active Substance: CHLOROPYRAMINE
     Route: 064
  3. CYCLOPHOSPHAMIDE. [Suspect]
     Active Substance: CYCLOPHOSPHAMIDE
     Indication: IMMUNOSUPPRESSANT DRUG THERAPY
     Route: 064
  4. DOXORUBICIN [Suspect]
     Active Substance: DOXORUBICIN
     Route: 064
  5. AMPICILLIN/SULBACTAM [Suspect]
     Active Substance: AMPICILLIN SODIUM\SULBACTAM SODIUM
     Route: 064
  6. OMEPRAZOLE. [Suspect]
     Active Substance: OMEPRAZOLE
     Route: 064
  7. RITUXIMAB. [Suspect]
     Active Substance: RITUXIMAB
     Indication: IMMUNOSUPPRESSANT DRUG THERAPY
     Route: 064
  8. FILGRASTIM [Suspect]
     Active Substance: FILGRASTIM
     Route: 064
  9. NADROPARIN [Suspect]
     Active Substance: NADROPARIN
     Route: 064
  10. ACETAMINOPHEN. [Suspect]
     Active Substance: ACETAMINOPHEN
     Route: 064

REACTIONS (2)
  - Foetal exposure during pregnancy [Unknown]
  - Intrauterine infection [Fatal]
